FAERS Safety Report 5134023-4 (Version None)
Quarter: 2006Q4

REPORT INFORMATION
  Report Type: 
  Country: None (occurrence: None)
  Receive Date: 20061018
  Receipt Date: 20060915
  Transmission Date: 20070319
  Serious: Yes (Death)
  Sender: FDA-Public Use
  Company Number: 2006-13290

PATIENT
  Sex: Female

DRUGS (1)
  1. LIDODERM [Suspect]
     Dosage: 10 DF
     Route: 061

REACTIONS (3)
  - CARDIAC ARREST [None]
  - OVERDOSE [None]
  - UNRESPONSIVE TO STIMULI [None]
